FAERS Safety Report 13267072 (Version 2)
Quarter: 2017Q1

REPORT INFORMATION
  Report Type: Spontaneous
  Country: FR (occurrence: FR)
  Receive Date: 20170224
  Receipt Date: 20170327
  Transmission Date: 20170428
  Serious: Yes (Death, Hospitalization)
  Sender: FDA-Public Use
  Company Number: FR-ROCHE-1897639

PATIENT
  Age: 74 Year
  Sex: Female

DRUGS (7)
  1. ENDOXAN [Suspect]
     Active Substance: CYCLOPHOSPHAMIDE
     Indication: BREAST CANCER
     Dosage: 08/FEB/2017: SECOND CYCLE
     Route: 042
     Dates: start: 20170118, end: 20170208
  2. LOW MOLECULAR WEIGHT HEPARIN [Concomitant]
     Active Substance: UNSPECIFIED INGREDIENT
  3. DOCETAXEL. [Suspect]
     Active Substance: DOCETAXEL
     Indication: BREAST CANCER
     Dosage: 08/FEB/2017: SECOND CYCLE
     Route: 042
     Dates: start: 20170118, end: 20170208
  4. CALCIPARINE [Suspect]
     Active Substance: HEPARIN CALCIUM
     Indication: PRODUCT USED FOR UNKNOWN INDICATION
     Route: 058
     Dates: start: 20170208
  5. COUMADINE [Concomitant]
     Active Substance: WARFARIN SODIUM
  6. DUROGESIC [Concomitant]
     Active Substance: FENTANYL
  7. HERCEPTIN [Suspect]
     Active Substance: TRASTUZUMAB
     Indication: BREAST CANCER
     Dosage: 08/FEB/2017: SECOND CYCLE
     Route: 042
     Dates: start: 20170118

REACTIONS (2)
  - Pancytopenia [Fatal]
  - Cerebral haematoma [Fatal]

NARRATIVE: CASE EVENT DATE: 20170208
